FAERS Safety Report 24004926 (Version 1)
Quarter: 2024Q2

REPORT INFORMATION
  Report Type: Spontaneous
  Country: DE (occurrence: DE)
  Receive Date: 20240624
  Receipt Date: 20240624
  Transmission Date: 20240716
  Serious: Yes (Other)
  Sender: FDA-Public Use
  Company Number: DE-BoehringerIngelheim-2024-BI-034369

PATIENT
  Age: 65 Year
  Sex: Male

DRUGS (7)
  1. CLONIDINE [Suspect]
     Active Substance: CLONIDINE
     Indication: Alcohol withdrawal syndrome
     Dosage: DAILY DOSE: 75 MICROGRAM(S), FORM STRENGTH: 75 MICROGRAM
     Route: 048
     Dates: end: 20240502
  2. CLONIDINE [Suspect]
     Active Substance: CLONIDINE
     Dosage: DAILY DOSE: 150 MICROGRAM(S)
     Route: 048
  3. EMPAGLIFLOZIN [Concomitant]
     Active Substance: EMPAGLIFLOZIN
     Indication: Product used for unknown indication
  4. Jardiance 25mg Filmtabletten [Concomitant]
     Indication: Type 2 diabetes mellitus
  5. LORAZEPAM [Concomitant]
     Active Substance: LORAZEPAM
     Indication: Product used for unknown indication
  6. Ramipril 10mg Tabletten [Concomitant]
     Indication: Hypertension
  7. Tavor 1mg Tabletten [Concomitant]
     Indication: Alcohol withdrawal syndrome
     Dates: start: 20240524

REACTIONS (3)
  - Urinary incontinence [Recovered/Resolved]
  - Bladder dysfunction [Recovered/Resolved]
  - Hypertensive crisis [Recovered/Resolved]

NARRATIVE: CASE EVENT DATE: 20240502
